FAERS Safety Report 10073560 (Version 1)
Quarter: 2014Q2

REPORT INFORMATION
  Report Type: Spontaneous
  Country: CL (occurrence: CL)
  Receive Date: 20140411
  Receipt Date: 20140411
  Transmission Date: 20141212
  Serious: Yes (Other)
  Sender: FDA-Public Use
  Company Number: CL-PFIZER INC-2014099684

PATIENT
  Sex: Female

DRUGS (7)
  1. LIPITOR [Suspect]
     Indication: BLOOD CHOLESTEROL
     Dosage: 20 MG, 1X/DAY
     Route: 048
     Dates: start: 2000
  2. CALCIUM [Concomitant]
     Dosage: UNK
  3. PROPOLIS [Concomitant]
     Dosage: UNK
  4. VIGAMOX [Concomitant]
     Dosage: UNK
  5. GANFORT [Concomitant]
     Dosage: UNK
  6. DINAFLEX DUO [Concomitant]
     Dosage: UNK
  7. LETROZOLE [Concomitant]
     Dosage: UNK

REACTIONS (6)
  - Glaucoma [Unknown]
  - Breast cancer [Unknown]
  - Cataract [Unknown]
  - Intraocular pressure increased [Not Recovered/Not Resolved]
  - Conjunctivitis [Not Recovered/Not Resolved]
  - Arthropathy [Not Recovered/Not Resolved]
